FAERS Safety Report 21075592 (Version 1)
Quarter: 2022Q3

REPORT INFORMATION
  Report Type: Spontaneous
  Country: US (occurrence: None)
  Receive Date: 20220713
  Receipt Date: 20220713
  Transmission Date: 20221027
  Serious: Yes (Hospitalization, Other)
  Sender: FDA-Public Use
  Company Number: 2022A250232

PATIENT
  Age: 920 Month
  Sex: Male
  Weight: 97.5 kg

DRUGS (12)
  1. FARXIGA [Suspect]
     Active Substance: DAPAGLIFLOZIN PROPANEDIOL
     Route: 065
     Dates: end: 202206
  2. CRESTOR [Suspect]
     Active Substance: ROSUVASTATIN CALCIUM
     Route: 065
  3. NOVOLOG [Suspect]
     Active Substance: INSULIN ASPART
     Route: 065
  4. LEVEMIR [Suspect]
     Active Substance: INSULIN DETEMIR
     Route: 065
  5. LEVEMIR [Suspect]
     Active Substance: INSULIN DETEMIR
     Route: 065
  6. METFORMIN [Suspect]
     Active Substance: METFORMIN HYDROCHLORIDE
     Route: 065
     Dates: end: 202205
  7. KORLYM [Suspect]
     Active Substance: MIFEPRISTONE
     Indication: Cushing^s syndrome
     Route: 048
     Dates: start: 20220318, end: 20220403
  8. KORLYM [Suspect]
     Active Substance: MIFEPRISTONE
     Indication: Cushing^s syndrome
     Route: 048
     Dates: start: 20220404
  9. BENAZEPRIL [Concomitant]
     Active Substance: BENAZEPRIL HYDROCHLORIDE
  10. FENOFIBRATE [Concomitant]
     Active Substance: FENOFIBRATE
  11. OZEMPIC [Concomitant]
     Active Substance: SEMAGLUTIDE
  12. PAROXETINE [Concomitant]
     Active Substance: PAROXETINE

REACTIONS (13)
  - Dyspnoea exertional [Unknown]
  - Atrial fibrillation [Unknown]
  - Pleural effusion [Unknown]
  - Blood iron decreased [Unknown]
  - Blood magnesium decreased [Unknown]
  - Blood sodium decreased [Unknown]
  - Blood potassium decreased [Unknown]
  - Blood pressure increased [Unknown]
  - Hypoglycaemia [Not Recovered/Not Resolved]
  - Sleep apnoea syndrome [Unknown]
  - Oedema [Unknown]
  - Decreased appetite [Unknown]
  - Dizziness [Recovered/Resolved]

NARRATIVE: CASE EVENT DATE: 20220101
